FAERS Safety Report 10590295 (Version 2)
Quarter: 2014Q4

REPORT INFORMATION
  Report Type: Spontaneous
  Country: US (occurrence: US)
  Receive Date: 20141118
  Receipt Date: 20141219
  Transmission Date: 20150529
  Serious: No
  Sender: FDA-Public Use
  Company Number: US-009507513-1411USA001670

PATIENT
  Age: 42 Year
  Sex: Male
  Weight: 63.49 kg

DRUGS (12)
  1. CLOBETASOL PROPIONATE. [Concomitant]
     Active Substance: CLOBETASOL PROPIONATE
     Dosage: APPLY TO AFFECTED AREA, BID(60G)
     Route: 061
  2. DOXYCYCLINE. [Concomitant]
     Active Substance: DOXYCYCLINE
     Dosage: 1 CAPSULE, BID(20 CAPSULES TAKING)
     Route: 048
  3. RIBAVIRIN. [Suspect]
     Active Substance: RIBAVIRIN
     Indication: HEPATITIS C
     Dosage: 200 MG 3 TABLETS, BID
     Route: 048
  4. DIAZEPAM. [Concomitant]
     Active Substance: DIAZEPAM
     Dosage: 1 TABLET, BID(60 TABLETS TAKING)
     Route: 048
  5. TIZANIDINE HYDROCHLORIDE. [Concomitant]
     Active Substance: TIZANIDINE HYDROCHLORIDE
     Dosage: UNK
     Route: 048
  6. ALPRAZOLAM. [Concomitant]
     Active Substance: ALPRAZOLAM
     Dosage: 1 TABLET, BID
     Route: 048
  7. METFORMIN [Concomitant]
     Active Substance: METFORMIN HYDROCHLORIDE
     Dosage: 1 TABLET, QD(30 TABLETS TAKING)
     Route: 048
  8. ZOLPIDEM TARTRATE. [Concomitant]
     Active Substance: ZOLPIDEM TARTRATE
     Dosage: 1 DF, HS(30 TABLETS TAKING)
     Route: 048
  9. PEGINTRON [Suspect]
     Active Substance: PEGINTERFERON ALFA-2B
     Indication: HEPATITIS C
     Dosage: REDIPEN, 120MCG/ 0.5 ML INJECT 1MG/KG ONCE A WEEK
     Route: 058
     Dates: start: 20141027, end: 20141119
  10. SOVALDI [Suspect]
     Active Substance: SOFOSBUVIR
     Indication: HEPATITIS C
     Dosage: UNK
  11. NEXIUM [Concomitant]
     Active Substance: ESOMEPRAZOLE MAGNESIUM
     Dosage: 1 CAPSULE, QD(30 TABLETS DELAYED RELEASE TAKING)
     Route: 048
  12. ACETAMINOPHEN (+) OXYCODONE HYDROCHLORIDE [Concomitant]
     Dosage: STRENGTH: 5MG-500MG CAPSULE
     Route: 048

REACTIONS (9)
  - Headache [Unknown]
  - Insomnia [Recovered/Resolved]
  - Pyrexia [Unknown]
  - Depression [Recovered/Resolved]
  - Drug dose omission [Unknown]
  - Decreased appetite [Unknown]
  - Malaise [Unknown]
  - Product quality issue [Unknown]
  - Fatigue [Recovered/Resolved]

NARRATIVE: CASE EVENT DATE: 2014
